FAERS Safety Report 5615090-8 (Version None)
Quarter: 2008Q1

REPORT INFORMATION
  Report Type: 
  Country: None (occurrence: None)
  Receive Date: 20080206
  Receipt Date: 20070413
  Transmission Date: 20080703
  Serious: Yes (Hospitalization, Other)
  Sender: FDA-Public Use
  Company Number: A0639223A

PATIENT
  Age: 60 Year
  Sex: Male

DRUGS (17)
  1. ARIXTRA [Suspect]
     Dosage: 2.5MG PER DAY
     Route: 058
     Dates: start: 20070116, end: 20070118
  2. THROMBIN LOCAL SOLUTION [Concomitant]
     Dates: start: 20070115, end: 20070115
  3. ALBUTEROL [Concomitant]
  4. ALLEGRA [Concomitant]
  5. NASACORT [Concomitant]
  6. ADVAIR DISKUS 100/50 [Concomitant]
  7. CARDIZEM [Concomitant]
  8. AVANDIA [Concomitant]
  9. LISINOPRIL [Concomitant]
  10. METFORMIN HCL [Concomitant]
  11. LIPITOR [Concomitant]
  12. NEXIUM [Concomitant]
  13. LANTUS [Concomitant]
     Route: 058
  14. HYDROCODONE BITARTRATE [Concomitant]
  15. VITAMINE C [Concomitant]
  16. TEMAZEPAM [Concomitant]
  17. SENOKOT [Concomitant]

REACTIONS (2)
  - DEEP VEIN THROMBOSIS [None]
  - DRUG INEFFECTIVE [None]
